FAERS Safety Report 7133623-X (Version None)
Quarter: 2010Q4

REPORT INFORMATION
  Report Type: 
  Country: None (occurrence: None)
  Receive Date: 20101202
  Receipt Date: 20101202
  Transmission Date: 20110411
  Serious: Yes (Death)
  Sender: FDA-Public Use
  Company Number: SI-AMGEN-SVNNI2010005208

PATIENT

DRUGS (24)
  1. CINACALCET HYDROCHLORIDE [Suspect]
     Indication: HYPERPARATHYROIDISM SECONDARY
     Dosage: 30 MG, QD
     Route: 048
     Dates: start: 20101111
  2. MICARDIS [Concomitant]
     Dosage: 80 MG, UNK
     Route: 048
  3. ADALAT [Concomitant]
     Dosage: UNK UNK, BID
     Route: 048
  4. ADALAT [Concomitant]
  5. CALCII CARBONAS [Concomitant]
     Dosage: 1 G, BID
     Route: 048
  6. AVODART [Concomitant]
     Dosage: 0.5 MG, QD
     Route: 048
     Dates: start: 20100912
  7. GLURENORM [Concomitant]
     Dosage: 30 MG, QD
     Route: 048
  8. SODIUM BICARBONATE [Concomitant]
     Dosage: 4 G, UNK
     Route: 048
  9. ALOPURINOL [Concomitant]
     Dosage: 100 MG, UNK
     Route: 048
  10. MONOPRIL [Concomitant]
     Dosage: 20 MG, BID
     Route: 048
  11. CORYOL [Concomitant]
     Dosage: 25 MG, BID
     Route: 048
  12. CONTROLOC                          /01263201/ [Concomitant]
     Dosage: 40 MG, UNK
     Route: 048
  13. RENAGEL [Concomitant]
     Dosage: 800 MG, TID
     Route: 048
  14. TANYZ                              /01280301/ [Concomitant]
     Dosage: 400 A?G, UNK
     Route: 048
  15. ASPIRIN [Concomitant]
     Dosage: 100 MG, UNK
     Route: 048
  16. ZEMPLAR [Concomitant]
     Dosage: 1 A?G, UNK
     Route: 048
  17. TONOCARDIN                         /00639301/ [Concomitant]
     Dosage: 4 UNK, UNK
     Route: 048
  18. PLAVIX [Concomitant]
     Dosage: 75 MG, UNK
     Route: 048
     Dates: start: 20100327, end: 20101023
  19. NITRO-DUR [Concomitant]
     Dosage: 200 A?G, UNK
     Route: 062
     Dates: start: 20100327
  20. DORMICUM                           /00036201/ [Concomitant]
     Dosage: 7500 A?G, UNK
     Route: 048
     Dates: start: 20100612
  21. PENTILIN [Concomitant]
     Dosage: 600 MG, BID
     Route: 048
     Dates: start: 20100623
  22. NEORECORMON [Concomitant]
     Dosage: 8000 IU, 2 TIMES/WK
     Route: 042
  23. ZALDIAR                            /01573601/ [Concomitant]
     Dosage: 7500 A?G, INTERMITTENT
     Route: 048
  24. ZALDIAR                            /01573601/ [Concomitant]
     Dosage: 3250 A?G, INTERMITTENT
     Route: 048

REACTIONS (1)
  - CARDIAC ARREST [None]
